FAERS Safety Report 15392139 (Version 3)
Quarter: 2019Q1

REPORT INFORMATION
  Report Type: Spontaneous
  Country: US (occurrence: US)
  Receive Date: 20180917
  Receipt Date: 20190314
  Transmission Date: 20190417
  Serious: Yes (Other)
  Sender: FDA-Public Use
  Company Number: US-PFIZER INC-2018370458

PATIENT
  Age: 46 Year
  Sex: Female
  Weight: 121.6 kg

DRUGS (2)
  1. METHYLPREDNISOLONE ACETATE. [Suspect]
     Active Substance: METHYLPREDNISOLONE ACETATE
     Dosage: 1 ML, UNK [40MG, 1 ML INJECTION IN KNEE]
     Dates: start: 20180911
  2. METHYLPREDNISOLONE ACETATE. [Suspect]
     Active Substance: METHYLPREDNISOLONE ACETATE
     Indication: OSTEOARTHRITIS
     Dosage: 1 ML, UNK [40MG, 1 ML INJECTION IN KNEE]
     Dates: start: 20180910

REACTIONS (6)
  - Expired product administered [Not Recovered/Not Resolved]
  - Hot flush [Not Recovered/Not Resolved]
  - Dysphagia [Recovered/Resolved]
  - Swelling face [Recovered/Resolved]
  - Headache [Recovered/Resolved]
  - Tinnitus [Recovered/Resolved]

NARRATIVE: CASE EVENT DATE: 20180910
